FAERS Safety Report 8249270-2 (Version None)
Quarter: 2012Q2

REPORT INFORMATION
  Report Type: 
  Country: None (occurrence: None)
  Receive Date: 20120402
  Receipt Date: 20120326
  Transmission Date: 20120825
  Serious: Yes (Life-Threatening)
  Sender: FDA-Public Use
  Company Number: CH-US-EMD SERONO, INC.-7096659

PATIENT
  Sex: Female
  Weight: 99 kg

DRUGS (5)
  1. FEXOFENADINE HCL [Concomitant]
     Indication: HYPERSENSITIVITY
     Route: 048
  2. DEPO-PROVERA [Concomitant]
     Indication: PRODUCT USED FOR UNKNOWN INDICATION
  3. IBRUPROFEN [Concomitant]
     Indication: ADVERSE EVENT
  4. REBIF [Suspect]
     Indication: MULTIPLE SCLEROSIS
     Route: 058
     Dates: start: 20100301, end: 20110706
  5. ACETAMINOPHEN [Concomitant]
     Indication: ADVERSE EVENT
     Route: 048

REACTIONS (1)
  - LIVER DISORDER [None]
